FAERS Safety Report 10078672 (Version 1)
Quarter: 2014Q2

REPORT INFORMATION
  Report Type: Spontaneous
  Country: JP (occurrence: None)
  Receive Date: 20140411
  Receipt Date: 20140411
  Transmission Date: 20141212
  Serious: Yes (Other)
  Sender: FDA-Public Use
  Company Number: ABR_01567_2014

PATIENT
  Age: 77 Year
  Sex: Male

DRUGS (1)
  1. GLIADEL [Suspect]
     Indication: MALIGNANT GLIOMA
     Dosage: INTRACEREBRAL

REACTIONS (4)
  - Hemiplegia [None]
  - Aphasia [None]
  - Pneumocephalus [None]
  - Condition aggravated [None]
